FAERS Safety Report 14693578 (Version 3)
Quarter: 2018Q2

REPORT INFORMATION
  Report Type: Spontaneous
  Country: US (occurrence: US)
  Receive Date: 20180329
  Receipt Date: 20180628
  Transmission Date: 20180711
  Serious: Yes (Hospitalization, Other)
  Sender: FDA-Public Use
  Company Number: US-GLAXOSMITHKLINE-US2018052259

PATIENT
  Sex: Male

DRUGS (7)
  1. CLONAZEPAM. [Concomitant]
     Active Substance: CLONAZEPAM
  2. TAMSULOSIN [Concomitant]
     Active Substance: TAMSULOSIN
  3. METOPROLOL. [Concomitant]
     Active Substance: METOPROLOL
  4. BETHANECHOL [Concomitant]
     Active Substance: BETHANECHOL
  5. QUINAPRIL. [Concomitant]
     Active Substance: QUINAPRIL
  6. VENTOLIN HFA [Suspect]
     Active Substance: ALBUTEROL SULFATE
     Indication: ASTHMA
     Dosage: 3 PUFF(S), 6D
     Route: 055
  7. RANITIDINE. [Concomitant]
     Active Substance: RANITIDINE

REACTIONS (11)
  - Drug effect decreased [Not Recovered/Not Resolved]
  - Overdose [Unknown]
  - Hypertension [Not Recovered/Not Resolved]
  - Wheezing [Not Recovered/Not Resolved]
  - Anxiety [Not Recovered/Not Resolved]
  - Intentional product misuse [Unknown]
  - Asthma [Unknown]
  - Product quality issue [Unknown]
  - Prostatic operation [Recovered/Resolved]
  - Multiple allergies [Recovered/Resolved with Sequelae]
  - Gastrooesophageal reflux disease [Not Recovered/Not Resolved]

NARRATIVE: CASE EVENT DATE: 2017
